FAERS Safety Report 22324949 (Version 1)
Quarter: 2023Q2

REPORT INFORMATION
  Report Type: Report from Study
  Country: ES (occurrence: None)
  Receive Date: 20230516
  Receipt Date: 20230516
  Transmission Date: 20230722
  Serious: Yes (Other)
  Sender: FDA-Public Use
  Company Number: ES-US-Provell Pharmaceuticals LLC-9401253

PATIENT
  Age: 38 Year
  Sex: Female

DRUGS (1)
  1. LEVOTHYROXINE SODIUM [Suspect]
     Active Substance: LEVOTHYROXINE SODIUM
     Indication: Hypothyroidism

REACTIONS (20)
  - Pulmonary arterial hypertension [Unknown]
  - Polymyositis [Unknown]
  - Coeliac disease [Unknown]
  - Rheumatoid arthritis [Unknown]
  - Systemic scleroderma [Unknown]
  - Telangiectasia [Unknown]
  - Raynaud^s phenomenon [Recovering/Resolving]
  - Gastrooesophageal reflux disease [Unknown]
  - Irritable bowel syndrome [Unknown]
  - Mobility decreased [Recovering/Resolving]
  - Asthenia [Recovering/Resolving]
  - Pain [Recovered/Resolved]
  - Blood iron decreased [Unknown]
  - Vitamin B12 decreased [Unknown]
  - Vitamin D decreased [Unknown]
  - Rhinitis [Unknown]
  - Stress [Unknown]
  - Depressed mood [Unknown]
  - Pruritus [Unknown]
  - Headache [Unknown]

NARRATIVE: CASE EVENT DATE: 20160101
